FAERS Safety Report 4530819-8 (Version None)
Quarter: 2004Q4

REPORT INFORMATION
  Report Type: 
  Country: None (occurrence: None)
  Receive Date: 20041216
  Receipt Date: 20041129
  Transmission Date: 20050328
  Serious: Yes (Hospitalization)
  Sender: FDA-Public Use
  Company Number: EWC041241615

PATIENT
  Age: 75 Year
  Sex: Female

DRUGS (9)
  1. FORSTEO (TERIPARATIDE) [Suspect]
     Indication: OSTEOPOROSIS
     Dosage: 20 UG/1 DAY
     Dates: start: 20040201, end: 20041101
  2. METHYLPREDNISOLONE [Concomitant]
  3. HYDROCORTISONE ACETATE [Concomitant]
  4. LOSARTAN POTASSIUM [Concomitant]
  5. BISOPROLOL FUMARATE [Concomitant]
  6. OMEPRAZOLE MAGNESIUM [Concomitant]
  7. ASPIRIN [Concomitant]
  8. CALCIUM CARBONATE [Concomitant]
  9. ESTRADIOL [Concomitant]

REACTIONS (4)
  - BLISTER [None]
  - DRUG INEFFECTIVE [None]
  - HYPOVOLAEMIA [None]
  - OEDEMA PERIPHERAL [None]
